FAERS Safety Report 7885121-3 (Version None)
Quarter: 2011Q4

REPORT INFORMATION
  Report Type: 
  Country: None (occurrence: None)
  Receive Date: 20111102
  Receipt Date: 20111026
  Transmission Date: 20120403
  Serious: Yes (Hospitalization)
  Sender: FDA-Public Use
  Company Number: JP-ABBOTT-11P-087-0696299-00

PATIENT
  Sex: Female
  Weight: 49.2 kg

DRUGS (13)
  1. RABEPRAZOLE SODIUM [Concomitant]
     Indication: PRODUCT USED FOR UNKNOWN INDICATION
     Route: 048
  2. BROTIZOLAM [Concomitant]
     Indication: PRODUCT USED FOR UNKNOWN INDICATION
     Route: 048
  3. LOXOPROFEN SODIUM HYDRATE [Concomitant]
     Indication: PRODUCT USED FOR UNKNOWN INDICATION
     Route: 062
  4. HUMIRA [Suspect]
     Route: 058
     Dates: start: 20110203, end: 20110203
  5. HUMIRA [Suspect]
     Dates: start: 20110301
  6. LOXOPROFEN SODIUM HYDRATE [Concomitant]
  7. ZOLPIDEM TARTRATE [Concomitant]
     Indication: PRODUCT USED FOR UNKNOWN INDICATION
     Dosage: 10 MG DAILY
     Route: 048
  8. HUMIRA [Suspect]
     Indication: CROHN'S DISEASE
     Route: 058
     Dates: start: 20101214, end: 20101214
  9. AZATHIOPRINE [Concomitant]
     Indication: PRODUCT USED FOR UNKNOWN INDICATION
     Route: 048
  10. LOXOPROFEN SODIUM HYDRATE [Concomitant]
     Route: 048
  11. MESALAMINE [Concomitant]
     Indication: PRODUCT USED FOR UNKNOWN INDICATION
     Dosage: 3000MG DAILY
     Route: 048
  12. LOPERAMIDE HCL [Concomitant]
     Indication: CROHN'S DISEASE
     Route: 048
     Dates: end: 20101228
  13. HUMIRA [Suspect]
     Dates: start: 20110216, end: 20110216

REACTIONS (2)
  - ILEAL STENOSIS [None]
  - INTESTINAL OBSTRUCTION [None]
